FAERS Safety Report 23977827 (Version 3)
Quarter: 2024Q2

REPORT INFORMATION
  Report Type: Report from Study
  Country: KR (occurrence: KR)
  Receive Date: 20240614
  Receipt Date: 20240628
  Transmission Date: 20240716
  Serious: Yes (Death, Hospitalization, Other)
  Sender: FDA-Public Use
  Company Number: KR-BAXTER-2024BAX019526

PATIENT
  Age: 74 Year
  Sex: Male
  Weight: 53.7 kg

DRUGS (23)
  1. DOXORUBICIN [Suspect]
     Active Substance: DOXORUBICIN
     Indication: Diffuse large B-cell lymphoma stage III
     Dosage: 70 MG, EVERY 3 WEEKS
     Route: 042
     Dates: start: 20240321, end: 20240524
  2. CYCLOPHOSPHAMIDE [Suspect]
     Active Substance: CYCLOPHOSPHAMIDE
     Indication: Diffuse large B-cell lymphoma stage III
     Dosage: 1050 MG, EVERY 3 WEEKS
     Route: 042
     Dates: start: 20240321, end: 20240524
  3. EPCORITAMAB [Suspect]
     Active Substance: EPCORITAMAB
     Indication: Diffuse large B-cell lymphoma stage III
     Dosage: UNK, DRUG NOT ADMINISTERED
     Route: 065
  4. RITUXIMAB [Suspect]
     Active Substance: RITUXIMAB
     Indication: Diffuse large B-cell lymphoma stage III
     Dosage: 525 MG, EVERY 3 WEEKS
     Route: 042
     Dates: start: 20240321, end: 20240524
  5. VINCRISTINE [Suspect]
     Active Substance: VINCRISTINE
     Indication: Diffuse large B-cell lymphoma stage III
     Dosage: 2 MG, EVERY 3 WEEKS
     Route: 042
     Dates: start: 20240321, end: 20240524
  6. PREDNISONE [Suspect]
     Active Substance: PREDNISONE
     Indication: Diffuse large B-cell lymphoma stage III
     Dosage: 100 MG DAILY C1-6, DAY 1-5, EVERY 1 DAYS
     Route: 048
     Dates: start: 20240321, end: 20240324
  7. FENTADUR [Concomitant]
     Indication: Lymph node pain
     Dosage: 1 DOSAGE FORM, EVERY 3 DAYS
     Route: 065
     Dates: start: 20240315
  8. FENTADUR [Concomitant]
     Indication: Prophylaxis
  9. PIPERACILLIN SODIUM\TAZOBACTAM SODIUM [Concomitant]
     Active Substance: PIPERACILLIN SODIUM\TAZOBACTAM SODIUM
     Indication: Abdominal abscess
     Dosage: 4.5 G, 3/DAYS
     Route: 065
     Dates: start: 20240416, end: 20240509
  10. FULLGRAM [Concomitant]
     Indication: Abdominal abscess
     Dosage: 1 AMP, 3/DAYS
     Route: 065
     Dates: start: 20240416, end: 20240509
  11. MORPHINE SULFATE [Concomitant]
     Active Substance: MORPHINE SULFATE
     Indication: Lymph node pain
     Dosage: 5 MG, AS NECESSARY
     Route: 065
     Dates: start: 20240318, end: 20240530
  12. DEXAMETHASONE [Concomitant]
     Active Substance: DEXAMETHASONE
     Indication: Chemotherapy side effect prophylaxis
     Dosage: 15 MG, EVERY 3 WEEKS
     Route: 065
     Dates: start: 20240411, end: 20240524
  13. MEGACE [Concomitant]
     Active Substance: MEGESTROL ACETATE
     Indication: Decreased appetite
     Dosage: 5 ML, EVERY 1 DAYS
     Route: 065
     Dates: start: 20240315, end: 20240523
  14. OMPS [Concomitant]
     Indication: Prophylaxis
     Dosage: 40 MG, EVERY 1 DAYS
     Route: 065
     Dates: start: 20240321, end: 20240530
  15. OMPS [Concomitant]
     Indication: Gastrooesophageal reflux disease
  16. ATIVAN [Concomitant]
     Active Substance: LORAZEPAM
     Indication: Chemotherapy side effect prophylaxis
     Dosage: 1 MG, EVERY 3 WEEKS
     Route: 065
     Dates: start: 20240321, end: 20240524
  17. AKYNZEO [Concomitant]
     Indication: Chemotherapy side effect prophylaxis
     Dosage: 1 DOSAGE FORM, EVERY 3 WEEKS
     Route: 065
     Dates: start: 20240321, end: 20240524
  18. FOLIC ACID [Concomitant]
     Active Substance: FOLIC ACID
     Indication: Prophylaxis
     Dosage: 1 MG, EVERY 1 DAYS
     Route: 065
     Dates: start: 20240321, end: 20240524
  19. SULFAMETHOXAZOLE\TRIMETHOPRIM [Concomitant]
     Active Substance: SULFAMETHOXAZOLE\TRIMETHOPRIM
     Indication: Prophylaxis
     Dosage: 480 MG, EVERY 1 DAYS
     Route: 065
     Dates: start: 20240321, end: 20240529
  20. SETOPEN [Concomitant]
     Indication: Chemotherapy side effect prophylaxis
     Dosage: 650 MG, EVERY 3 WEEKS
     Route: 065
     Dates: start: 20240321, end: 20240524
  21. NEULASTA [Concomitant]
     Active Substance: PEGFILGRASTIM
     Indication: Prophylaxis
     Dosage: 6 MG, EVERY 3 WEEKS
     Route: 065
     Dates: start: 20240322, end: 20240525
  22. NEULASTA [Concomitant]
     Active Substance: PEGFILGRASTIM
     Indication: Neutropenia
  23. NYSTATIN [Concomitant]
     Active Substance: NYSTATIN
     Indication: Antifungal prophylaxis
     Dosage: 1 ML, 3/DAYS
     Route: 065
     Dates: start: 20240401, end: 20240529

REACTIONS (2)
  - Sepsis [Fatal]
  - Sepsis [Recovered/Resolved]

NARRATIVE: CASE EVENT DATE: 20240530
